FAERS Safety Report 6867575-4 (Version None)
Quarter: 2010Q3

REPORT INFORMATION
  Report Type: 
  Country: None (occurrence: None)
  Receive Date: 20100722
  Receipt Date: 20100419
  Transmission Date: 20110219
  Serious: No
  Sender: FDA-Public Use
  Company Number: US-BAUSCH-2010BL000311

PATIENT
  Age: 57 Year
  Sex: Female

DRUGS (1)
  1. TOBRAMYCIN AND DEXAMETHASONE [Suspect]
     Indication: CONJUNCTIVITIS
     Route: 047
     Dates: start: 20100114, end: 20100114

REACTIONS (1)
  - CONJUNCTIVAL DISCOLOURATION [None]
